FAERS Safety Report 11227677 (Version 2)
Quarter: 2015Q3

REPORT INFORMATION
  Report Type: Spontaneous
  Country: US (occurrence: None)
  Receive Date: 20150626
  Receipt Date: 20150706
  Transmission Date: 20151125
  Serious: Yes (Hospitalization, Other)
  Sender: FDA-Public Use
  Company Number: US-002093

PATIENT
  Age: 62 Year
  Sex: Female

DRUGS (1)
  1. PARATHYROID HORMONE [Suspect]
     Active Substance: PARATHYROID HORMONE
     Indication: HYPOPARATHYROIDISM
     Dosage: DF
     Route: 058
     Dates: start: 20150504

REACTIONS (6)
  - Malaise [None]
  - Local swelling [None]
  - Swelling face [None]
  - Eye swelling [None]
  - Lip swelling [None]
  - Oropharyngeal pain [None]

NARRATIVE: CASE EVENT DATE: 20150612
